FAERS Safety Report 6140567-9 (Version None)
Quarter: 2009Q2

REPORT INFORMATION
  Report Type: 
  Country: None (occurrence: None)
  Receive Date: 20090402
  Receipt Date: 20090323
  Transmission Date: 20091009
  Serious: Yes (Other)
  Sender: FDA-Public Use
  Company Number: IT-RANBAXY-2007RR-10443

PATIENT
  Age: 72 Year
  Sex: Female

DRUGS (4)
  1. SERTRALINE HCL [Suspect]
  2. SOTALOL HYDROCHLORIDE [Suspect]
  3. DIGOXIN [Suspect]
  4. TROMBOSTOP 2MG COMPRIMATE [Suspect]

REACTIONS (2)
  - ELECTROCARDIOGRAM QT PROLONGED [None]
  - TORSADE DE POINTES [None]
